FAERS Safety Report 6187299-9 (Version None)
Quarter: 2009Q2

REPORT INFORMATION
  Report Type: 
  Country: None (occurrence: None)
  Receive Date: 20090512
  Receipt Date: 20090506
  Transmission Date: 20091009
  Serious: Yes (Hospitalization)
  Sender: FDA-Public Use
  Company Number: US-ASTRAZENECA-2009UW11544

PATIENT
  Age: 68 Year
  Sex: Male
  Weight: 93.9 kg

DRUGS (9)
  1. NEXIUM [Suspect]
     Route: 048
  2. IMDUR [Concomitant]
  3. DIOVAN [Concomitant]
  4. LOPRESSOR [Concomitant]
  5. LIPITOR [Concomitant]
  6. SPIRIVA [Concomitant]
  7. LASIX [Concomitant]
  8. ALBUTEROL [Concomitant]
  9. PLAVIX [Concomitant]

REACTIONS (4)
  - CARDIAC OPERATION [None]
  - DYSPNOEA [None]
  - FLUID RETENTION [None]
  - MYOCARDIAL INFARCTION [None]
